FAERS Safety Report 18252573 (Version 1)
Quarter: 2020Q3

REPORT INFORMATION
  Report Type: Report from Study
  Country: CA (occurrence: CA)
  Receive Date: 20200910
  Receipt Date: 20200910
  Transmission Date: 20201103
  Serious: Yes (Other)
  Sender: FDA-Public Use
  Company Number: CA-ACCORD-199802

PATIENT
  Age: 72 Year
  Sex: Male

DRUGS (6)
  1. METHOTREXATE. [Suspect]
     Active Substance: METHOTREXATE
     Indication: PRODUCT USED FOR UNKNOWN INDICATION
  2. ACTEMRA [Suspect]
     Active Substance: TOCILIZUMAB
     Indication: GIANT CELL ARTERITIS
     Route: 058
  3. CALCIUM [Concomitant]
     Active Substance: CALCIUM
  4. PERINDOPRIL [Concomitant]
     Active Substance: PERINDOPRIL
  5. DEXILANT [Concomitant]
     Active Substance: DEXLANSOPRAZOLE
  6. ACETYLSALICYLIC ACID [Concomitant]
     Active Substance: ASPIRIN

REACTIONS (4)
  - Blindness unilateral [Not Recovered/Not Resolved]
  - Intentional product use issue [Unknown]
  - Giant cell arteritis [Not Recovered/Not Resolved]
  - Weight increased [Not Recovered/Not Resolved]
